FAERS Safety Report 8297145-5 (Version None)
Quarter: 2012Q2

REPORT INFORMATION
  Report Type: 
  Country: None (occurrence: None)
  Receive Date: 20120419
  Receipt Date: 20120416
  Transmission Date: 20120825
  Serious: Yes (Other)
  Sender: FDA-Public Use
  Company Number: US-PFIZER INC-2012061016

PATIENT
  Sex: Female

DRUGS (2)
  1. KEFLEX [Suspect]
     Indication: RASH
     Dosage: 250 MG, 4X/DAY
     Route: 048
     Dates: start: 20120224
  2. CELEBREX [Suspect]
     Indication: RASH
     Dosage: 200 MG, 2X/DAY
     Route: 048
     Dates: start: 20120224

REACTIONS (1)
  - STEVENS-JOHNSON SYNDROME [None]
